FAERS Safety Report 21965451 (Version 11)
Quarter: 2024Q1

REPORT INFORMATION
  Report Type: Spontaneous
  Country: US (occurrence: US)
  Receive Date: 20230208
  Receipt Date: 20240304
  Transmission Date: 20240410
  Serious: Yes (Other)
  Sender: FDA-Public Use
  Company Number: US-GLAXOSMITHKLINE-US2023018005

PATIENT

DRUGS (10)
  1. ZEJULA [Suspect]
     Active Substance: NIRAPARIB
     Indication: Ovarian cancer
     Dosage: 100 MG, QD
     Dates: start: 20230124
  2. ZEJULA [Suspect]
     Active Substance: NIRAPARIB
     Dosage: 200 MG, QD
     Route: 048
  3. ZEJULA [Suspect]
     Active Substance: NIRAPARIB
     Dosage: 200 MG, QD
  4. ZEJULA [Suspect]
     Active Substance: NIRAPARIB
     Dosage: 200 MG, QD
  5. ZEJULA [Suspect]
     Active Substance: NIRAPARIB
     Dosage: 200 MG, QD
     Route: 048
  6. ZEJULA [Suspect]
     Active Substance: NIRAPARIB
     Indication: Ovarian cancer
     Dosage: 100 MG, QD
     Route: 048
  7. ZEJULA [Suspect]
     Active Substance: NIRAPARIB
     Dosage: 100 MG, QD
  8. KEPPRA [Concomitant]
     Active Substance: LEVETIRACETAM
     Indication: Product used for unknown indication
     Dosage: UNK
  9. LAMICTAL [Concomitant]
     Active Substance: LAMOTRIGINE
     Indication: Product used for unknown indication
     Dosage: UNK
  10. LINZESS [Concomitant]
     Active Substance: LINACLOTIDE
     Indication: Product used for unknown indication
     Dosage: UNK

REACTIONS (23)
  - Epilepsy [Unknown]
  - Abdominal pain upper [Unknown]
  - Pain [Unknown]
  - Constipation [Unknown]
  - Blood potassium decreased [Unknown]
  - Memory impairment [Recovering/Resolving]
  - Sleep disorder [Unknown]
  - Headache [Unknown]
  - Dizziness [Unknown]
  - Intraocular pressure test [Unknown]
  - Pruritus [Unknown]
  - Somnolence [Not Recovered/Not Resolved]
  - White blood cell count decreased [Recovering/Resolving]
  - Abdominal discomfort [Unknown]
  - Fatigue [Unknown]
  - Confusional state [Unknown]
  - Glucose tolerance impaired [Unknown]
  - Blood cholesterol increased [Unknown]
  - Lethargy [Unknown]
  - Gastrooesophageal reflux disease [Unknown]
  - Low density lipoprotein increased [Unknown]
  - Blood pressure increased [Unknown]
  - Anxiety [Unknown]
